FAERS Safety Report 8342220-X (Version None)
Quarter: 2012Q2

REPORT INFORMATION
  Report Type: 
  Country: None (occurrence: None)
  Receive Date: 20120507
  Receipt Date: 20120427
  Transmission Date: 20120825
  Serious: Yes (Other)
  Sender: FDA-Public Use
  Company Number: US-AMGEN-USASP2012026845

PATIENT
  Age: 84 Year
  Sex: Female

DRUGS (2)
  1. ENBREL [Suspect]
     Indication: RHEUMATOID ARTHRITIS
     Dosage: 50 MG, QWK
     Dates: start: 19981201, end: 20111201
  2. METHOTREXATE [Concomitant]
     Dosage: 6 MG, UNK
     Dates: start: 20120108

REACTIONS (7)
  - FATIGUE [None]
  - ARTHRALGIA [None]
  - ULCERATIVE KERATITIS [None]
  - MYALGIA [None]
  - MUSCULOSKELETAL STIFFNESS [None]
  - URINARY TRACT INFECTION [None]
  - DIARRHOEA [None]
